FAERS Safety Report 22705192 (Version 4)
Quarter: 2024Q3

REPORT INFORMATION
  Report Type: Spontaneous
  Country: US (occurrence: US)
  Receive Date: 20230714
  Receipt Date: 20240722
  Transmission Date: 20241016
  Serious: No
  Sender: SANOFI AVENTIS
  Company Number: US-SA-SAC20230712000940

PATIENT
  Age: 66 Year
  Sex: Female

DRUGS (8)
  1. DUPIXENT [Suspect]
     Active Substance: DUPILUMAB
     Indication: Dermatitis atopic
     Dosage: 300 MG, QOW
     Route: 058
  2. DUPIXENT [Suspect]
     Active Substance: DUPILUMAB
     Dosage: 300 MG, QOW
     Route: 058
     Dates: start: 20230613
  3. DUPIXENT [Suspect]
     Active Substance: DUPILUMAB
     Dosage: 300 MG, QOW
     Route: 058
  4. TRIAMCINOLONE [Concomitant]
     Active Substance: TRIAMCINOLONE
     Dosage: UNK
  5. VITAMIN D3 [Concomitant]
     Active Substance: CHOLECALCIFEROL
     Dosage: UNK
  6. TRIAMCINOLONE [Concomitant]
     Active Substance: TRIAMCINOLONE
  7. PROBIOTICS NOS [Concomitant]
     Active Substance: PROBIOTICS NOS
     Dosage: UNK
  8. FLAXSEED [Concomitant]
     Active Substance: FLAX SEED
     Dosage: UNK

REACTIONS (10)
  - Rash macular [Unknown]
  - Skin ulcer [Unknown]
  - Skin discolouration [Unknown]
  - Dry skin [Not Recovered/Not Resolved]
  - Pruritus [Not Recovered/Not Resolved]
  - Skin exfoliation [Not Recovered/Not Resolved]
  - Hair disorder [Unknown]
  - Condition aggravated [Unknown]
  - Dermatitis atopic [Unknown]
  - Intentional dose omission [Unknown]

NARRATIVE: CASE EVENT DATE: 20230101
